FAERS Safety Report 20388122 (Version 3)
Quarter: 2022Q1

REPORT INFORMATION
  Report Type: Spontaneous
  Country: US (occurrence: US)
  Receive Date: 20220128
  Receipt Date: 20220314
  Transmission Date: 20220423
  Serious: Yes (Death)
  Sender: FDA-Public Use
  Company Number: None

PATIENT
  Age: 30 Year
  Sex: Male

DRUGS (9)
  1. DIPHENHYDRAMINE HYDROCHLORIDE [Suspect]
     Active Substance: DIPHENHYDRAMINE HYDROCHLORIDE
     Dosage: UNK
  2. ETIZOLAM [Suspect]
     Active Substance: ETIZOLAM
     Dosage: UNK
  3. FENTANYL [Suspect]
     Active Substance: FENTANYL
     Dosage: UNK
  4. ALCOHOL [Suspect]
     Active Substance: ALCOHOL
     Dosage: UNK
  5. ALPRAZOLAM [Suspect]
     Active Substance: ALPRAZOLAM
  6. CODEINE [Suspect]
     Active Substance: CODEINE
     Dosage: UNK
  7. MORPHINE [Suspect]
     Active Substance: MORPHINE
     Dosage: UNK
  8. HEROIN [Suspect]
     Active Substance: DIAMORPHINE
     Dosage: UNK
  9. DRONABINOL [Suspect]
     Active Substance: DRONABINOL
     Dosage: UNK

REACTIONS (7)
  - Toxicity to various agents [Fatal]
  - Unresponsive to stimuli [Unknown]
  - Pulmonary congestion [Fatal]
  - Drug interaction [Fatal]
  - Brain oedema [Fatal]
  - Respiratory depression [Fatal]
  - Pulmonary oedema [Fatal]

NARRATIVE: CASE EVENT DATE: 20181201
